FAERS Safety Report 19142912 (Version 1)
Quarter: 2021Q2

REPORT INFORMATION
  Report Type: Spontaneous
  Country: US (occurrence: US)
  Receive Date: 20210416
  Receipt Date: 20210416
  Transmission Date: 20210717
  Serious: No
  Sender: FDA-Public Use
  Company Number: US-SA-2021SA121328

PATIENT
  Age: 74 Year

DRUGS (1)
  1. ZANTAC [Suspect]
     Active Substance: RANITIDINE HYDROCHLORIDE
     Route: 065

REACTIONS (4)
  - Therapeutic product effect incomplete [Unknown]
  - Insomnia [Unknown]
  - Abdominal pain upper [Unknown]
  - Decreased appetite [Unknown]
